FAERS Safety Report 23548235 (Version 1)
Quarter: 2024Q1

REPORT INFORMATION
  Report Type: Spontaneous
  Country: RU (occurrence: RU)
  Receive Date: 20240221
  Receipt Date: 20240221
  Transmission Date: 20240409
  Serious: Yes (Hospitalization)
  Sender: FDA-Public Use
  Company Number: RU-002147023-NVSC2024RU035109

PATIENT
  Age: 15 Year
  Sex: Female
  Weight: 50 kg

DRUGS (3)
  1. ILARIS [Suspect]
     Active Substance: CANAKINUMAB
     Indication: Arthritis
     Dosage: 192 MG
     Route: 058
     Dates: start: 20211013, end: 20240111
  2. SELZINK PLUS [Concomitant]
     Indication: Prophylaxis
     Dosage: UNK
     Route: 048
     Dates: start: 20240110, end: 20240111
  3. AQUADETRIM D3 [Concomitant]
     Indication: Prophylaxis
     Dosage: UNK
     Route: 048
     Dates: start: 20240101, end: 20240120

REACTIONS (7)
  - Toxic skin eruption [Recovering/Resolving]
  - Pallor [Unknown]
  - Erythema [Unknown]
  - Hyperthermia [Unknown]
  - Papule [Unknown]
  - Pruritus [Unknown]
  - Skin lesion [Unknown]

NARRATIVE: CASE EVENT DATE: 20240111
